FAERS Safety Report 8955110 (Version 1)
Quarter: 2012Q4

REPORT INFORMATION
  Report Type: 
  Country: DE (occurrence: DE)
  Receive Date: 20121210
  Receipt Date: 20121210
  Transmission Date: 20130627
  Serious: Yes (Hospitalization)
  Sender: FDA-Public Use
  Company Number: DE-BIOGENIDEC-2012BI056248

PATIENT
  Age: 43 Year
  Sex: Female
  Weight: 75 kg

DRUGS (5)
  1. TYSABRI [Suspect]
     Indication: MULTIPLE SCLEROSIS
     Route: 042
     Dates: start: 20100708
  2. AMINEURIN [Concomitant]
     Indication: DEPRESSION
     Dates: start: 2010
  3. CYMBALTA [Concomitant]
     Indication: PAIN
     Dates: start: 2009
  4. TOLPERISONE [Concomitant]
     Indication: PAIN
     Dates: start: 2008
  5. TRAMAL [Concomitant]
     Indication: PRODUCT USED FOR UNKNOWN INDICATION
     Dates: start: 2007

REACTIONS (1)
  - Ileus [Recovered/Resolved]
